FAERS Safety Report 8201900-7 (Version None)
Quarter: 2012Q1

REPORT INFORMATION
  Report Type: 
  Country: None (occurrence: None)
  Receive Date: 20120312
  Receipt Date: 20120302
  Transmission Date: 20120608
  Serious: Yes (Hospitalization, Other)
  Sender: FDA-Public Use
  Company Number: US-BAYER-2011-042033

PATIENT
  Age: 29 Year
  Sex: Female
  Weight: 61 kg

DRUGS (35)
  1. TEGRETOL-XR [Concomitant]
     Dosage: UNK
     Dates: start: 20080101
  2. MECLIZINE [Concomitant]
     Indication: NAUSEA
     Dosage: 25 MG, UNK
     Dates: start: 20100520
  3. STOMATOLOGICALS, MOUTH PREPARATIONS [Concomitant]
     Dosage: UNK
     Dates: start: 20100524
  4. FOLIC ACID [Concomitant]
     Dosage: 1 MG, UNK
     Dates: start: 20100524
  5. GABAPENTIN [Concomitant]
     Indication: ANXIETY
     Dosage: 300 MG, UNK
     Route: 048
     Dates: start: 19970101
  6. TRILEPTAL [Concomitant]
     Indication: ANXIETY
  7. DROSPIRENONE AND ETHINYL ESTRADIOL [Suspect]
     Indication: MENSTRUATION IRREGULAR
  8. RESTASIS [Concomitant]
     Dosage: 0.05 %, UNK
     Route: 047
     Dates: start: 20100524
  9. BORAGE OIL [Concomitant]
     Dosage: UNK
     Route: 048
     Dates: start: 20100524
  10. FIORICET [Concomitant]
     Dosage: UNK
     Route: 048
     Dates: start: 20100524
  11. NORGESTIMATE AND ETHINYL ESTRADIOL [Concomitant]
     Indication: CONTRACEPTION
     Dosage: UNK
     Dates: start: 20100601
  12. YAZ [Suspect]
     Indication: MENSTRUATION IRREGULAR
  13. ADALIMUMAB [Concomitant]
     Dosage: UNK
     Dates: start: 20100303
  14. OMEPRAZOLE [Concomitant]
     Dosage: 40 MG, UNK
     Route: 048
     Dates: start: 20100524
  15. CALCIUM D [Concomitant]
     Dosage: UNK
     Route: 048
     Dates: start: 20100524
  16. PHENERGAN [Concomitant]
     Dosage: UNK
     Route: 048
     Dates: start: 20100524
  17. ATIVAN [Concomitant]
     Dosage: UNK
     Route: 048
     Dates: start: 20100524
  18. NASAL [OXYMETAZOLINE HYDROCHLORIDE] [Concomitant]
     Dosage: UNK
     Route: 045
     Dates: start: 20100524
  19. TRILEPTAL [Concomitant]
     Indication: BIPOLAR DISORDER
     Dosage: 300 MG, UNK
     Dates: start: 20080101
  20. ATARAX [Concomitant]
     Dosage: UNK
     Route: 048
     Dates: start: 20100524
  21. TORADOL [Concomitant]
     Indication: ABDOMINAL PAIN
     Dosage: UNK
     Route: 042
     Dates: start: 20091023
  22. YAZ [Suspect]
     Indication: CONTRACEPTION
     Dosage: UNK
     Dates: start: 20090101, end: 20091201
  23. DROSPIRENONE AND ETHINYL ESTRADIOL [Suspect]
     Indication: CONTRACEPTION
     Dosage: UNK
     Dates: start: 20100101, end: 20100401
  24. HYDROXYCHLOROQUINE SULFATE [Concomitant]
     Indication: RHEUMATOID ARTHRITIS
     Dosage: 200 MG, BID
     Dates: start: 20100524
  25. FAMOTIDINE [Concomitant]
     Dosage: 10 MG, UNK
     Route: 048
     Dates: start: 20100524
  26. BIOTIN [Concomitant]
     Dosage: UNK
     Route: 048
     Dates: start: 20100524
  27. TRIAMCINOLONE ACETATE [Concomitant]
     Dosage: UNK
     Route: 061
     Dates: start: 20100426
  28. MOBIC [Concomitant]
     Dosage: UNK
     Route: 048
     Dates: start: 20100524
  29. SEROQUEL [Concomitant]
     Dosage: UNK
     Route: 048
     Dates: start: 20100524
  30. BENADRYL [Concomitant]
     Dosage: 25 MG, UNK
     Route: 048
     Dates: start: 20100524
  31. SYNTHROID [Concomitant]
     Indication: HYPOTHYROIDISM
     Dosage: UNK
     Dates: start: 20050101
  32. FISH OIL [Concomitant]
     Dosage: UNK
     Route: 048
     Dates: start: 20100524
  33. IBUPROFEN [Concomitant]
  34. SEASONALE [Concomitant]
  35. ESTRADIOL [Concomitant]
     Dosage: DAILY

REACTIONS (7)
  - GASTROINTESTINAL DISORDER [None]
  - BILIARY DYSKINESIA [None]
  - PAIN [None]
  - APPENDICECTOMY [None]
  - INJURY [None]
  - CHOLECYSTITIS CHRONIC [None]
  - ABDOMINAL PAIN [None]
